FAERS Safety Report 6720182-6 (Version None)
Quarter: 2010Q2

REPORT INFORMATION
  Report Type: 
  Country: None (occurrence: None)
  Receive Date: 20100511
  Receipt Date: 20100419
  Transmission Date: 20101027
  Serious: No
  Sender: FDA-Public Use
  Company Number: US-ABBOTT-10P-163-0640451-00

PATIENT
  Sex: Male

DRUGS (4)
  1. NORVIR [Suspect]
     Indication: HIV TEST POSITIVE
     Route: 048
  2. NORVIR [Concomitant]
     Indication: HIV TEST POSITIVE
     Route: 048
     Dates: start: 20100401
  3. NORVIR [Concomitant]
     Route: 048
     Dates: start: 20100401
  4. UNKNOWN ANTIVIRAL MEDICATION [Concomitant]
     Indication: HIV TEST POSITIVE

REACTIONS (1)
  - URTICARIA [None]
